FAERS Safety Report 6708509-2 (Version None)
Quarter: 2010Q2

REPORT INFORMATION
  Report Type: 
  Country: None (occurrence: None)
  Receive Date: 20100503
  Receipt Date: 20090514
  Transmission Date: 20101027
  Serious: No
  Sender: FDA-Public Use
  Company Number: US-ASTRAZENECA-2008UW09376

PATIENT
  Age: 50 Year
  Sex: Male
  Weight: 77.1 kg

DRUGS (3)
  1. NEXIUM [Suspect]
     Indication: GASTROOESOPHAGEAL REFLUX DISEASE
     Route: 048
     Dates: start: 20060101
  2. BLOOD PRESSURE MEDICATION [Concomitant]
     Indication: BLOOD PRESSURE
  3. MUSCLE RELAXER [Concomitant]
     Indication: MUSCLE RELAXANT THERAPY

REACTIONS (2)
  - ABDOMINAL PAIN [None]
  - DRUG INEFFECTIVE [None]
